FAERS Safety Report 9448407 (Version 2)
Quarter: 2013Q3

REPORT INFORMATION
  Report Type: Spontaneous
  Country: JP (occurrence: JP)
  Receive Date: 20130808
  Receipt Date: 20130827
  Transmission Date: 20140515
  Serious: Yes (Other)
  Sender: FDA-Public Use
  Company Number: JP-PFIZER INC-2013187750

PATIENT
  Age: 89 Year
  Sex: Female
  Weight: 36 kg

DRUGS (14)
  1. TOVIAZ [Suspect]
     Indication: HYPERTONIC BLADDER
     Dosage: 4 MG, 1X/DAY
     Route: 048
     Dates: start: 20130502, end: 20130515
  2. LENDORMIN D [Concomitant]
     Indication: INSOMNIA
     Dosage: 0.25 MG, 1X/DAY
     Route: 048
     Dates: start: 20130502, end: 20130529
  3. BAYASPIRIN [Concomitant]
     Indication: ANALGESIC THERAPY
     Dosage: 100 MG, 1X/DAY
     Route: 048
     Dates: start: 20130502, end: 20130529
  4. ACTONEL [Concomitant]
     Indication: OSTEOPOROSIS
     Dosage: 2.5 MG, 1X/DAY
     Route: 048
     Dates: start: 20130502, end: 20130529
  5. ROCALTROL [Concomitant]
     Indication: OSTEOPOROSIS
     Dosage: 0.25 MG, 2X/DAY
     Route: 048
     Dates: start: 20130502, end: 20130529
  6. RYTHMODAN R [Concomitant]
     Indication: ARRHYTHMIA
     Dosage: 150 MG, 2X/DAY
     Route: 048
     Dates: start: 20130502, end: 20130529
  7. PURSENNID [Concomitant]
     Indication: CONSTIPATION
     Dosage: 24 MG, 1X/DAY
     Route: 048
     Dates: start: 20130502, end: 20130529
  8. YOKUKAN-SAN [Concomitant]
     Indication: NEUROSIS
     Dosage: 2.5 G, 3X/DAY
     Route: 048
     Dates: start: 20130502, end: 20130529
  9. LAXOBERON [Concomitant]
     Indication: CONSTIPATION
     Dosage: 15 GTT, AS NEEDED
     Route: 048
     Dates: start: 20130502
  10. AMITIZA [Concomitant]
     Indication: CONSTIPATION
     Dosage: 24 UG, 1X/DAY
     Route: 048
     Dates: start: 20130502, end: 20130515
  11. LORCAM [Concomitant]
     Indication: INSOMNIA
     Dosage: 4 MG, 3X/DAY
     Route: 048
     Dates: start: 20130502, end: 20130529
  12. MUCOSTA [Concomitant]
     Indication: GASTRITIS
     Dosage: 100 MG, 3X/DAY
     Route: 048
     Dates: start: 20130502, end: 20130529
  13. TRAMCET [Concomitant]
     Indication: PAIN
     Dosage: 1 DF, 2X/DAY
     Route: 048
     Dates: start: 20130502, end: 20130529
  14. EXELON [Concomitant]
     Indication: DEMENTIA ALZHEIMER^S TYPE
     Dosage: 4.5 MG, 1X/DAY
     Route: 061
     Dates: start: 20130502

REACTIONS (3)
  - Urinary retention [Recovered/Resolved]
  - Melaena [Recovered/Resolved]
  - Anaemia [Recovered/Resolved]
